FAERS Safety Report 14482592 (Version 1)
Quarter: 2018Q1

REPORT INFORMATION
  Report Type: Spontaneous
  Country: IT (occurrence: IT)
  Receive Date: 20180203
  Receipt Date: 20180203
  Transmission Date: 20180509
  Serious: Yes (Hospitalization)
  Sender: FDA-Public Use
  Company Number: IT-ROCHE-2060812

PATIENT
  Age: 67 Year
  Sex: Female

DRUGS (3)
  1. TRIMETON [Concomitant]
     Active Substance: CHLORPHENIRAMINE MALEATE
     Route: 042
  2. MABTHERA [Suspect]
     Active Substance: RITUXIMAB
     Indication: NON-HODGKIN^S LYMPHOMA
     Route: 042
     Dates: start: 20170306, end: 20170306
  3. ACETAMOL (ITALY) [Concomitant]
     Route: 048

REACTIONS (4)
  - Coma [Not Recovered/Not Resolved]
  - Presyncope [Not Recovered/Not Resolved]
  - Syncope [Not Recovered/Not Resolved]
  - Asthenia [Not Recovered/Not Resolved]

NARRATIVE: CASE EVENT DATE: 20170306
